FAERS Safety Report 5099392-2 (Version None)
Quarter: 2006Q3

REPORT INFORMATION
  Report Type: 
  Country: None (occurrence: None)
  Receive Date: 20060731
  Receipt Date: 20060623
  Transmission Date: 20061208
  Serious: No
  Sender: FDA-Public Use
  Company Number: 2006PV016295

PATIENT
  Age: 76 Year
  Sex: Female
  Weight: 7.7111 kg

DRUGS (3)
  1. BYETTA [Suspect]
     Indication: DIABETES MELLITUS NON-INSULIN-DEPENDENT
     Dosage: SC
     Route: 058
     Dates: start: 20060501, end: 20060623
  2. COUMADIN [Suspect]
     Indication: ATRIAL FIBRILLATION
     Dosage: 5 MG, PO
     Route: 048
     Dates: start: 20010101, end: 20060623
  3. COUMADIN [Suspect]
     Indication: MITRAL VALVE PROLAPSE
     Dosage: 5 MG, PO
     Route: 048
     Dates: start: 20010101, end: 20060623

REACTIONS (2)
  - INTERNATIONAL NORMALISED RATIO INCREASED [None]
  - WEIGHT DECREASED [None]
